FAERS Safety Report 7336500-4 (Version None)
Quarter: 2011Q1

REPORT INFORMATION
  Report Type: 
  Country: None (occurrence: None)
  Receive Date: 20110307
  Receipt Date: 20110127
  Transmission Date: 20110831
  Serious: No
  Sender: FDA-Public Use
  Company Number: US-AMGEN-USASP2011005349

PATIENT
  Sex: Male

DRUGS (2)
  1. TAXOTERE [Concomitant]
  2. XGEVA [Suspect]
     Indication: METASTASES TO BONE
     Dates: start: 20110117

REACTIONS (2)
  - INFLUENZA LIKE ILLNESS [None]
  - BONE PAIN [None]
